FAERS Safety Report 5326902-X (Version None)
Quarter: 2007Q2

REPORT INFORMATION
  Report Type: 
  Country: None (occurrence: None)
  Receive Date: 20070511
  Receipt Date: 20070501
  Transmission Date: 20071010
  Serious: Yes (Life-Threatening, Hospitalization, Other)
  Sender: FDA-Public Use
  Company Number: GXKR2007GB03997

PATIENT
  Sex: Male

DRUGS (11)
  1. ASPIRIN [Suspect]
     Indication: MYOCARDIAL ISCHAEMIA
     Dosage: QD, ORAL
     Route: 048
     Dates: start: 20040902, end: 20070303
  2. BISOPROLOL FUMARATE [Concomitant]
  3. CARBOCISTEINE (CARBOCISTEINE) [Concomitant]
  4. IRBESARTAN [Concomitant]
  5. OMEPRAZOLE (OMEPAZOLE) [Concomitant]
  6. OMEPRAZOLE MAGNESIUM (OMEPRAZOLE MAGNESIUM) [Concomitant]
  7. OMEPRAZOLE SODIUM (OMEPRAZOLE SODIUM) [Concomitant]
  8. SALBUTAMOL (SALBUTAMOL) [Concomitant]
  9. SERETIDE (FLUTICASONE PROPIONATE, SALMETEROL XINAFOATE) [Concomitant]
  10. SIMVASTATIN [Concomitant]
  11. TIOTROPIUM BROMIDE (TIOTROPIUM BROMIDE) [Concomitant]

REACTIONS (1)
  - CEREBRAL HAEMORRHAGE [None]
